FAERS Safety Report 13826097 (Version 1)
Quarter: 2017Q3

REPORT INFORMATION
  Report Type: Spontaneous
  Country: FR (occurrence: FR)
  Receive Date: 20170802
  Receipt Date: 20170802
  Transmission Date: 20171127
  Serious: Yes (Hospitalization)
  Sender: FDA-Public Use
  Company Number: FR-ABBVIE-17P-056-2059389-00

PATIENT
  Age: 6 Year
  Sex: Male

DRUGS (2)
  1. DEPAKINE [Suspect]
     Active Substance: VALPROATE SODIUM
     Indication: IDIOPATHIC GENERALISED EPILEPSY
     Route: 048
     Dates: start: 201502, end: 20170724
  2. DEPAKINE [Suspect]
     Active Substance: VALPROATE SODIUM
     Route: 048
     Dates: start: 20170725

REACTIONS (1)
  - Parotitis [Not Recovered/Not Resolved]
